FAERS Safety Report 4816114-8 (Version None)
Quarter: 2005Q4

REPORT INFORMATION
  Report Type: 
  Country: None (occurrence: None)
  Receive Date: 20051026
  Receipt Date: 20051010
  Transmission Date: 20060501
  Serious: Yes (Death)
  Sender: FDA-Public Use
  Company Number: USA0508104661

PATIENT
  Age: 78 Year
  Sex: Male

DRUGS (4)
  1. CYMBALTA [Suspect]
     Indication: AGITATION
     Dosage: 30 MG
  2. FORADIL [Concomitant]
  3. AMBIEN [Concomitant]
  4. TESTOSTERONE [Concomitant]

REACTIONS (1)
  - DEATH [None]
